FAERS Safety Report 20172854 (Version 1)
Quarter: 2021Q4

REPORT INFORMATION
  Report Type: Spontaneous
  Country: NL (occurrence: NL)
  Receive Date: 20211211
  Receipt Date: 20211211
  Transmission Date: 20220303
  Serious: Yes (Hospitalization)
  Sender: FDA-Public Use
  Company Number: None

PATIENT
  Age: 39 Year
  Sex: Female
  Weight: 58 kg

DRUGS (8)
  1. CARBOPLATIN [Suspect]
     Active Substance: CARBOPLATIN
     Indication: Breast cancer
     Dosage: CARBOLPLATIN AUC 6 ON DAY 1 OF EVERY 3 WEEKLY , UNIT DOSE : 1 DF
     Dates: start: 20210709, end: 20211115
  2. DEXAMETHASONE [Suspect]
     Active Substance: DEXAMETHASONE
     Indication: Prophylaxis
     Dosage: DEXAMETHASONE 12 MG ON DAY 1, 8 OF EVERY 3 WEEKS , UNIT DOSE : 12 MG
     Dates: start: 20210709, end: 20211115
  3. PACLITAXEL [Suspect]
     Active Substance: PACLITAXEL
     Indication: Breast cancer
     Dosage: 80 MG/M2 ON DAYS 1 AND 8 OF EVERY 3-WEEKLY CU , UNIT DOSE : 80 MG/M2
     Dates: start: 20210709, end: 20211115
  4. PERTUZUMAB\TRASTUZUMAB [Concomitant]
     Active Substance: PERTUZUMAB\TRASTUZUMAB
     Dosage: PERTUZUMAB 420 MG, TRASTUZUMAB 335 MG ON DAY 1 OF EVERY 3 WEEKS , UNIT DOSE : 1 DF , STRENGTH : 60/6
  5. CYANOCOBALAMIN [Concomitant]
     Active Substance: CYANOCOBALAMIN
     Dosage: 1000 UG (MICROGRAM) , THERAPY START DATE AND END DATE : ASKU
  6. APREPITANT [Concomitant]
     Active Substance: APREPITANT
     Dosage: 125 MG ON DAY 1, 80 MG ON DAYS 2 AND 3 OF EACH COURSE , UNIT DOSE : 125 MG , THERAPY START DATE AND
  7. METOCLOPRAMIDE [Concomitant]
     Active Substance: METOCLOPRAMIDE
     Dosage: 10 MG (MILLIGRAM) , THERAPY START DATE AND END DATE : ASKU
  8. ONDANSETRON [Concomitant]
     Active Substance: ONDANSETRON
     Dosage: MELTING TABLET, 8 MG (MILLIGRAM) , THERAPY START DATE AND END DATE : ASKU

REACTIONS (2)
  - Gastric perforation [Recovering/Resolving]
  - Abdominal discomfort [Unknown]

NARRATIVE: CASE EVENT DATE: 20211001
